FAERS Safety Report 13803169 (Version 1)
Quarter: 2017Q3

REPORT INFORMATION
  Report Type: Spontaneous
  Country: US (occurrence: US)
  Receive Date: 20170727
  Receipt Date: 20170727
  Transmission Date: 20171127
  Serious: No
  Sender: FDA-Public Use
  Company Number: None

PATIENT
  Age: 72 Year
  Sex: Male
  Weight: 94 kg

DRUGS (2)
  1. LISINOPRIL. [Suspect]
     Active Substance: LISINOPRIL
     Indication: CORONARY ARTERIAL STENT INSERTION
     Route: 048
     Dates: start: 20170314, end: 20170322
  2. LISINOPRIL. [Suspect]
     Active Substance: LISINOPRIL
     Indication: HYPERTENSION
     Route: 048
     Dates: start: 20170314, end: 20170322

REACTIONS (1)
  - Angioedema [None]

NARRATIVE: CASE EVENT DATE: 20170320
